FAERS Safety Report 6980064-1 (Version None)
Quarter: 2010Q3

REPORT INFORMATION
  Report Type: 
  Country: None (occurrence: None)
  Receive Date: 20100914
  Receipt Date: 20100908
  Transmission Date: 20110219
  Serious: Yes (Death, Life-Threatening)
  Sender: FDA-Public Use
  Company Number: CN-BRACCO-000175

PATIENT
  Age: 62 Year
  Sex: Male

DRUGS (3)
  1. METOPROLOL TARTRATE [Concomitant]
  2. IOPAMIRO [Suspect]
     Indication: ARTERIOGRAM CORONARY
     Dosage: 30G 100ML/BOTTLE
     Route: 013
     Dates: start: 20100312, end: 20100312
  3. ASPIRIN [Concomitant]

REACTIONS (3)
  - ANAPHYLACTIC SHOCK [None]
  - MYOCARDIAL ISCHAEMIA [None]
  - VENTRICULAR FIBRILLATION [None]
